FAERS Safety Report 8503494-5 (Version None)
Quarter: 2012Q3

REPORT INFORMATION
  Report Type: 
  Country: None (occurrence: None)
  Receive Date: 20120711
  Receipt Date: 20120628
  Transmission Date: 20120928
  Serious: Yes (Hospitalization)
  Sender: FDA-Public Use
  Company Number: DE-GLAXOSMITHKLINE-B0812372A

PATIENT
  Sex: Female
  Weight: 92 kg

DRUGS (8)
  1. LAPATINIB [Suspect]
     Indication: BREAST CANCER
     Dosage: 750MG PER DAY
     Route: 048
     Dates: start: 20120620
  2. GRANISETRON HYDROCHLORIDE [Concomitant]
     Dosage: 1MG PER DAY
     Dates: start: 20120620
  3. DEXAMETHASONE SODIUM PHOSPHATE [Concomitant]
     Dates: start: 20120620
  4. TRASTUZUMAB [Suspect]
     Indication: BREAST CANCER
     Dosage: 8MGK EVERY 3 WEEKS
     Route: 042
     Dates: start: 20120619
  5. FENISTIL [Concomitant]
     Dates: start: 20120620
  6. RANITIDINE [Concomitant]
     Dates: start: 20120620
  7. PACLITAXEL [Suspect]
     Indication: BREAST CANCER
     Dosage: 80MGM2 WEEKLY
     Route: 042
     Dates: start: 20120620
  8. DOXORUBICIN HCL [Suspect]
     Indication: BREAST CANCER
     Dosage: 20MGM2 WEEKLY
     Route: 042
     Dates: start: 20120620

REACTIONS (1)
  - PYREXIA [None]
